FAERS Safety Report 8928646 (Version 1)
Quarter: 2012Q4

REPORT INFORMATION
  Report Type: Spontaneous
  Country: US (occurrence: None)
  Receive Date: 20121120
  Receipt Date: 20121120
  Transmission Date: 20130627
  Serious: Yes (Death, Life-Threatening, Other)
  Sender: FDA-Public Use
  Company Number: CL-448-2012

PATIENT
  Age: 5 Year
  Sex: Male

DRUGS (1)
  1. ONDANSETRON [Suspect]

REACTIONS (4)
  - Hyperthermia malignant [None]
  - Serotonin syndrome [None]
  - Ventricular tachycardia [None]
  - Muscle rigidity [None]
